FAERS Safety Report 4420619-1 (Version None)
Quarter: 2004Q2

REPORT INFORMATION
  Report Type: 
  Country: None (occurrence: None)
  Receive Date: 20040618
  Receipt Date: 20030624
  Transmission Date: 20050107
  Serious: Yes (Disabling, Other)
  Sender: FDA-Public Use
  Company Number: US-SHR-03-009942

PATIENT
  Age: 70 Year
  Sex: Female

DRUGS (1)
  1. FLUDARA [Suspect]
     Indication: CHRONIC LYMPHOCYTIC LEUKAEMIA
     Dosage: 50 MG/D X 3 Q28D X 3 CYCLES, INTRAVENOUS
     Route: 042
     Dates: start: 20030202, end: 20030404

REACTIONS (11)
  - AMNESIA [None]
  - APHASIA [None]
  - CEREBRAL ISCHAEMIA [None]
  - DYSGRAPHIA [None]
  - FEELING JITTERY [None]
  - GAIT DISTURBANCE [None]
  - NEUROTOXICITY [None]
  - PANCYTOPENIA [None]
  - POVERTY OF SPEECH [None]
  - TREMOR [None]
  - WEIGHT DECREASED [None]
